FAERS Safety Report 17713222 (Version 1)
Quarter: 2020Q2

REPORT INFORMATION
  Report Type: Spontaneous
  Country: US (occurrence: US)
  Receive Date: 20200427
  Receipt Date: 20200427
  Transmission Date: 20200714
  Serious: No
  Sender: FDA-Public Use
  Company Number: None

PATIENT
  Sex: Female

DRUGS (1)
  1. MAKENA [Suspect]
     Active Substance: HYDROXYPROGESTERONE CAPROATE
     Indication: PREGNANCY
     Dosage: ?          OTHER STRENGTH:275MG/1.1M;?
     Route: 058
     Dates: start: 202003

REACTIONS (4)
  - Maternal drugs affecting foetus [None]
  - Injection site rash [None]
  - Hypoaesthesia [None]
  - Maternal exposure timing unspecified [None]
